FAERS Safety Report 13922804 (Version 2)
Quarter: 2017Q3

REPORT INFORMATION
  Report Type: Spontaneous
  Country: US (occurrence: US)
  Receive Date: 20170830
  Receipt Date: 20170914
  Transmission Date: 20171127
  Serious: No
  Sender: FDA-Public Use
  Company Number: US-009507513-1708USA012967

PATIENT
  Age: 16 Year
  Sex: Female
  Weight: 67.57 kg

DRUGS (1)
  1. NEXPLANON [Suspect]
     Active Substance: ETONOGESTREL
     Dosage: 1 DF (68 MG), ONE ROD PER 3 YEARS
     Route: 059
     Dates: start: 20170610, end: 20170822

REACTIONS (3)
  - Drug administered to patient of inappropriate age [Unknown]
  - Implant site pain [Unknown]
  - Implant site infection [Unknown]

NARRATIVE: CASE EVENT DATE: 20170610
